FAERS Safety Report 7018360-4 (Version None)
Quarter: 2010Q3

REPORT INFORMATION
  Report Type: 
  Country: None (occurrence: None)
  Receive Date: 20100924
  Receipt Date: 20100917
  Transmission Date: 20110219
  Serious: Yes (Death, Hospitalization)
  Sender: FDA-Public Use
  Company Number: 2010US003832

PATIENT
  Age: 49 Year
  Sex: Male
  Weight: 93 kg

DRUGS (4)
  1. PROGRAF [Suspect]
     Indication: LIVER TRANSPLANT
     Dosage: 2 MG, BID, ORAL
     Route: 048
     Dates: start: 20070722, end: 20100801
  2. PROTONIX [Concomitant]
  3. NEBIVOLOL [Concomitant]
  4. LANTUS [Concomitant]

REACTIONS (1)
  - CEREBROVASCULAR ACCIDENT [None]
